FAERS Safety Report 24258494 (Version 1)
Quarter: 2024Q3

REPORT INFORMATION
  Report Type: Report from Study
  Country: DE (occurrence: DE)
  Receive Date: 20240828
  Receipt Date: 20240828
  Transmission Date: 20241017
  Serious: Yes (Hospitalization, Other)
  Sender: SANDOZ
  Company Number: DE-SZ09-GXKR2014DE003892

PATIENT
  Age: 23 Year
  Sex: Female

DRUGS (2)
  1. FILGRASTIM [Suspect]
     Active Substance: FILGRASTIM
     Indication: Stem cell donor
     Dosage: 2700 UG
     Route: 058
     Dates: start: 20131013
  2. FILGRASTIM [Suspect]
     Active Substance: FILGRASTIM
     Dosage: 2700 UG
     Route: 058

REACTIONS (5)
  - Depression [Recovered/Resolved]
  - Bone pain [Recovered/Resolved]
  - Blood potassium decreased [Recovered/Resolved]
  - Nasopharyngitis [Recovered/Resolved]
  - Haematoma [Recovered/Resolved]

NARRATIVE: CASE EVENT DATE: 20131013
